FAERS Safety Report 5761601-1 (Version None)
Quarter: 2008Q2

REPORT INFORMATION
  Report Type: 
  Country: None (occurrence: None)
  Receive Date: 20080606
  Receipt Date: 20080526
  Transmission Date: 20081010
  Serious: Yes (Hospitalization)
  Sender: FDA-Public Use
  Company Number: NL-PFIZER INC-2008030378

PATIENT
  Age: 47 Year
  Sex: Male
  Weight: 118 kg

DRUGS (9)
  1. CHANTIX [Suspect]
     Indication: NICOTINE DEPENDENCE
     Route: 048
     Dates: start: 20080201, end: 20080320
  2. INSULIN [Concomitant]
     Route: 058
  3. METFORMIN HCL [Concomitant]
     Route: 048
  4. HYDROCHLOROTHIAZIDE [Concomitant]
     Route: 048
  5. LIPITOR [Concomitant]
     Route: 048
  6. ARTHROTEC [Concomitant]
     Route: 048
  7. VALSARTAN [Concomitant]
  8. ENALAPRIL MALEATE [Concomitant]
     Route: 048
  9. TEMAZEPAM [Concomitant]

REACTIONS (2)
  - DIABETIC COMPLICATION [None]
  - FURUNCLE [None]
